APPROVED DRUG PRODUCT: HALAVEN
Active Ingredient: ERIBULIN MESYLATE
Strength: 1MG/2ML (0.5MG/ML)
Dosage Form/Route: SOLUTION;INTRAVENOUS
Application: N201532 | Product #001 | TE Code: AP
Applicant: EISAI INC
Approved: Nov 15, 2010 | RLD: Yes | RS: Yes | Type: RX

PATENTS:
Patent RE46965 | Expires: Jan 8, 2027
Patent RE46965*PED | Expires: Jul 8, 2027

EXCLUSIVITY:
Code: PED | Date: Mar 13, 2026
Code: M-280 | Date: Sep 13, 2025